FAERS Safety Report 21366180 (Version 1)
Quarter: 2022Q3

REPORT INFORMATION
  Report Type: Spontaneous
  Country: AU (occurrence: AU)
  Receive Date: 20220922
  Receipt Date: 20220922
  Transmission Date: 20221026
  Serious: Yes (Hospitalization, Other)
  Sender: FDA-Public Use
  Company Number: AU-BoehringerIngelheim-2022-BI-193519

PATIENT
  Age: 4 Year
  Sex: Male

DRUGS (3)
  1. CATAPRES [Suspect]
     Active Substance: CLONIDINE HYDROCHLORIDE
     Indication: Product used for unknown indication
     Dosage: QD AT NIGHT
  2. CATAPRES [Suspect]
     Active Substance: CLONIDINE HYDROCHLORIDE
  3. RITALIN [Concomitant]
     Active Substance: METHYLPHENIDATE HYDROCHLORIDE
     Indication: Product used for unknown indication

REACTIONS (6)
  - Bradycardia [Unknown]
  - Respiratory rate decreased [Unknown]
  - Eye disorder [Unknown]
  - Somnolence [Unknown]
  - Accidental overdose [Unknown]
  - Dysarthria [Unknown]
